FAERS Safety Report 6508532-7 (Version None)
Quarter: 2009Q4

REPORT INFORMATION
  Report Type: 
  Country: None (occurrence: None)
  Receive Date: 20091221
  Receipt Date: 20081125
  Transmission Date: 20100525
  Serious: No
  Sender: FDA-Public Use
  Company Number: US-ASTRAZENECA-2008UW26522

PATIENT
  Sex: Female

DRUGS (2)
  1. CRESTOR [Suspect]
     Dosage: UNKNOWN
     Route: 048
  2. WELLBUTRIN [Interacting]
     Route: 065

REACTIONS (2)
  - ADVERSE REACTION [None]
  - DRUG INTERACTION [None]
